FAERS Safety Report 7973523-6 (Version None)
Quarter: 2011Q4

REPORT INFORMATION
  Report Type: 
  Country: None (occurrence: None)
  Receive Date: 20111122
  Receipt Date: 20110711
  Transmission Date: 20120403
  Serious: No
  Sender: FDA-Public Use
  Company Number: PHHY2011US49208

PATIENT
  Age: 57 Year
  Sex: Female

DRUGS (5)
  1. CYCLOBENZAPRINE [Concomitant]
  2. ASPIRIN [Concomitant]
  3. DIAZEPAM [Concomitant]
  4. GILENYA [Suspect]
     Indication: MULTIPLE SCLEROSIS
     Dosage: 0.5 MG, QD, ORAL
     Route: 048
     Dates: start: 20110527, end: 20110610
  5. VERAPAMIL [Concomitant]

REACTIONS (14)
  - MUSCLE SPASMS [None]
  - DYSARTHRIA [None]
  - NEGATIVE THOUGHTS [None]
  - ARTHRALGIA [None]
  - DYSPNOEA [None]
  - MUSCULOSKELETAL DISCOMFORT [None]
  - DRUG HYPERSENSITIVITY [None]
  - MALAISE [None]
  - PRURITUS GENERALISED [None]
  - PAIN [None]
  - HEADACHE [None]
  - INSOMNIA [None]
  - BRUXISM [None]
  - MUSCULAR WEAKNESS [None]
